APPROVED DRUG PRODUCT: ETOPOSIDE
Active Ingredient: ETOPOSIDE
Strength: 50MG
Dosage Form/Route: CAPSULE;ORAL
Application: A075635 | Product #001 | TE Code: AB
Applicant: MYLAN PHARMACEUTICALS INC
Approved: Sep 19, 2001 | RLD: No | RS: Yes | Type: RX